FAERS Safety Report 10071052 (Version 2)
Quarter: 2014Q2

REPORT INFORMATION
  Report Type: Spontaneous
  Country: CL (occurrence: CL)
  Receive Date: 20140410
  Receipt Date: 20140410
  Transmission Date: 20141212
  Serious: Yes (Other)
  Sender: FDA-Public Use
  Company Number: CL-JNJFOC-20130600120

PATIENT
  Age: 35 Year
  Sex: Male
  Weight: 81 kg

DRUGS (5)
  1. SIMPONI [Suspect]
     Indication: RHEUMATOID ARTHRITIS
     Route: 058
  2. SIMPONI [Suspect]
     Indication: RHEUMATOID ARTHRITIS
     Route: 058
     Dates: start: 20130516
  3. ALLEGRA [Concomitant]
     Route: 065
  4. LEVOCETIRIZINE [Concomitant]
     Route: 065
  5. CELEBRA [Concomitant]
     Route: 065

REACTIONS (2)
  - Urinary tract infection [Unknown]
  - Hypersensitivity [Not Recovered/Not Resolved]
